FAERS Safety Report 8453331-2 (Version None)
Quarter: 2012Q2

REPORT INFORMATION
  Report Type: 
  Country: None (occurrence: None)
  Receive Date: 20120620
  Receipt Date: 20120513
  Transmission Date: 20120825
  Serious: No
  Sender: FDA-Public Use
  Company Number: US-VERTEX PHARMACEUTICALS INC.-AE-2012-007059

PATIENT
  Sex: Male
  Weight: 72.64 kg

DRUGS (16)
  1. INCIVEK [Suspect]
     Indication: HEPATITIS C
     Route: 048
     Dates: start: 20120427
  2. SAPHRIS [Concomitant]
     Indication: BIPOLAR DISORDER
     Route: 048
  3. SAPHRIS [Concomitant]
     Indication: SCHIZOPHRENIA
  4. RITALIN [Concomitant]
     Indication: ATTENTION DEFICIT/HYPERACTIVITY DISORDER
     Route: 048
  5. RIBAVIRIN [Concomitant]
     Indication: HEPATITIS C
     Route: 048
     Dates: start: 20120427
  6. OXYCONTIN [Concomitant]
     Indication: PAIN
  7. MELOXICAM [Concomitant]
     Indication: ARTHRALGIA
     Route: 048
  8. PEGASYS [Concomitant]
     Indication: HEPATITIS C
     Route: 058
     Dates: start: 20120427
  9. HYDROCHLOROTHIAZIDE [Concomitant]
     Indication: HYPERTENSION
     Route: 048
  10. LITHIUM CARBONATE [Concomitant]
     Indication: BIPOLAR DISORDER
     Route: 048
  11. XANAX [Concomitant]
     Indication: ANXIETY
     Route: 048
  12. FLOMAX [Concomitant]
     Indication: BENIGN PROSTATIC HYPERPLASIA
     Route: 048
  13. CELEXA [Concomitant]
     Indication: DEPRESSION
     Route: 048
  14. OXYBUTYNIN [Concomitant]
     Route: 048
  15. PERCOCET [Concomitant]
     Indication: PAIN
     Route: 048
  16. TRAZODONE HCL [Concomitant]
     Indication: DEPRESSION
     Route: 048

REACTIONS (1)
  - INCORRECT DOSE ADMINISTERED [None]
